FAERS Safety Report 4466019-X (Version None)
Quarter: 2004Q3

REPORT INFORMATION
  Report Type: 
  Country: None (occurrence: None)
  Receive Date: 20040930
  Receipt Date: 20040916
  Transmission Date: 20050211
  Serious: Yes (Hospitalization)
  Sender: FDA-Public Use
  Company Number: 0661058

PATIENT
  Age: 56 Year
  Sex: Female

DRUGS (11)
  1. VASERETIC [Suspect]
     Indication: HYPERTENSION
     Dosage: PO
     Route: 048
     Dates: start: 20040223
  2. AMITRIPTYLINE HYDROCHLORIDE [Concomitant]
  3. ASPIRIN [Concomitant]
  4. ATORVASTATIN CALCIUM [Concomitant]
  5. BLINDED THERAPY [Concomitant]
  6. CELIPROLOL HYDROCHLORIDE [Concomitant]
  7. FLUOXETINE [Concomitant]
  8. GLICLAZIDE [Concomitant]
  9. METFORMIN [Concomitant]
  10. PIOGLITAZONE HYDROCHLORIDE [Concomitant]
  11. PREDNISOLONE [Concomitant]

REACTIONS (1)
  - GLOSSITIS [None]
